FAERS Safety Report 4403920-7 (Version None)
Quarter: 2004Q3

REPORT INFORMATION
  Report Type: 
  Country: None (occurrence: None)
  Receive Date: 20040719
  Receipt Date: 20040705
  Transmission Date: 20050211
  Serious: Yes (Hospitalization)
  Sender: FDA-Public Use
  Company Number: 2004-BP-05545YA(0)

PATIENT
  Age: 65 Year
  Sex: Male

DRUGS (5)
  1. OMNIC CAPSULES (TAMSULOSIN) [Suspect]
     Indication: MICTURITION DISORDER
     Dosage: 0.4 MG PO
     Route: 048
     Dates: start: 20030501
  2. ZOLEDRONAT ACID [Suspect]
     Indication: METASTASES TO BONE
     Dosage: SEE TEXT , 4 MG Q4W, I.V.
     Route: 042
     Dates: start: 20030501, end: 20040401
  3. IBUPROFEN [Suspect]
     Indication: PAIN
     Dosage: 1800 MG (600 MG, 3 X 600 MG DAILY P.O. 600 M G DAILY P.O)
     Route: 048
     Dates: start: 20030501, end: 20040401
  4. FUROSEMIDE [Concomitant]
  5. BICALUTAMIDE (BICALUTAMIDE) [Concomitant]

REACTIONS (2)
  - DIALYSIS [None]
  - RENAL FAILURE ACUTE [None]
